FAERS Safety Report 18277917 (Version 1)
Quarter: 2020Q3

REPORT INFORMATION
  Report Type: Spontaneous
  Country: DE (occurrence: DE)
  Receive Date: 20200917
  Receipt Date: 20200917
  Transmission Date: 20201103
  Serious: Yes (Life-Threatening, Hospitalization, Other)
  Sender: FDA-Public Use
  Company Number: DE-JNJFOC-20200903357

PATIENT
  Age: 67 Year
  Sex: Male

DRUGS (3)
  1. COMBIVIR [Suspect]
     Active Substance: LAMIVUDINE\ZIDOVUDINE
     Indication: HIV INFECTION
     Dosage: UNK
     Route: 065
     Dates: start: 201112
  2. PREZISTA [Suspect]
     Active Substance: DARUNAVIR ETHANOLATE
     Indication: HIV INFECTION
     Dosage: 1 DF, BID
     Route: 048
  3. NORVIR [Suspect]
     Active Substance: RITONAVIR
     Indication: HIV INFECTION
     Dosage: 1 DF, BID
     Route: 065
     Dates: start: 200601

REACTIONS (9)
  - Pyrexia [Recovered/Resolved with Sequelae]
  - Malaria [Recovered/Resolved with Sequelae]
  - Acute kidney injury [Unknown]
  - General physical health deterioration [Unknown]
  - Chills [Unknown]
  - Haemolytic anaemia [Recovered/Resolved with Sequelae]
  - Thrombocytopenia [Unknown]
  - Altered state of consciousness [Unknown]
  - Proteinuria [Recovered/Resolved with Sequelae]

NARRATIVE: CASE EVENT DATE: 20111201
